FAERS Safety Report 5759911-7 (Version None)
Quarter: 2008Q2

REPORT INFORMATION
  Report Type: 
  Country: None (occurrence: None)
  Receive Date: 20080605
  Receipt Date: 20080523
  Transmission Date: 20081010
  Serious: Yes (Other)
  Sender: FDA-Public Use
  Company Number: US-BAYER-200812003BCC

PATIENT
  Age: 83 Year
  Sex: Male
  Weight: 87 kg

DRUGS (5)
  1. ALEVE (CAPLET) [Suspect]
     Indication: BACK PAIN
     Dosage: UNIT DOSE: 220 MG
     Route: 048
     Dates: start: 20070101
  2. ASPIRIN [Suspect]
     Indication: ISCHAEMIC HEART DISEASE PROPHYLAXIS
     Dosage: TOTAL DAILY DOSE: 325 MG  UNIT DOSE: 325 MG
     Route: 048
  3. HYZAAR [Concomitant]
  4. PRESURVISION [Concomitant]
  5. ZOCOR [Concomitant]

REACTIONS (3)
  - DYSPHAGIA [None]
  - HICCUPS [None]
  - OESOPHAGITIS [None]
